FAERS Safety Report 9244075 (Version 1)
Quarter: 2013Q1

REPORT INFORMATION
  Report Type: Spontaneous
  Country: US (occurrence: None)
  Receive Date: 20121123
  Receipt Date: 20121123
  Transmission Date: 20140127
  Serious: Yes (Hospitalization)
  Sender: FDA-Public Use
  Company Number: 362654

PATIENT
  Age: 45 Year
  Sex: Male
  Weight: 101.6 kg

DRUGS (1)
  1. VICTOZA [Suspect]
     Indication: TYPE 2 DIABETES MELLITUS
     Route: 058
     Dates: start: 201210, end: 201210

REACTIONS (3)
  - Nausea [None]
  - Vomiting [None]
  - Dehydration [None]
